FAERS Safety Report 9800306 (Version 2)
Quarter: 2014Q1

REPORT INFORMATION
  Report Type: Report from Study
  Country: US (occurrence: US)
  Receive Date: 20140106
  Receipt Date: 20140307
  Transmission Date: 20141002
  Serious: Yes (Death, Other)
  Sender: FDA-Public Use
  Company Number: US-GILEAD-2014-0091300

PATIENT
  Sex: Male

DRUGS (5)
  1. AZTREONAM LYSINE [Suspect]
     Indication: CYSTIC FIBROSIS
     Dosage: UNK
     Route: 065
     Dates: start: 20100811, end: 20130102
  2. AZTREONAM LYSINE [Suspect]
     Indication: PSEUDOMONAS INFECTION
  3. TOBRAMYCIN [Concomitant]
     Dosage: UNK
  4. CEFTAZIDIME [Concomitant]
     Dosage: UNK
  5. AZTREONAM [Concomitant]
     Dosage: UNK

REACTIONS (1)
  - Acute respiratory failure [Fatal]
